FAERS Safety Report 13273178 (Version 2)
Quarter: 2017Q3

REPORT INFORMATION
  Report Type: Spontaneous
  Country: US (occurrence: US)
  Receive Date: 20170227
  Receipt Date: 20170713
  Transmission Date: 20171127
  Serious: Yes (Death)
  Sender: FDA-Public Use
  Company Number: US-PFIZER INC-2017083588

PATIENT
  Age: 72 Year
  Sex: Female
  Weight: 49 kg

DRUGS (2)
  1. FENTANYL. [Concomitant]
     Active Substance: FENTANYL
     Indication: PAIN
     Dosage: PLACED EVERY 72 HOURS
  2. SUTENT [Suspect]
     Active Substance: SUNITINIB MALATE
     Indication: CHLOROMA
     Dosage: 37.5 MG, DAILY (ONE DAILY, EVERY DAY AT 8AM)

REACTIONS (3)
  - Product use in unapproved indication [Unknown]
  - Death [Fatal]
  - Decreased appetite [Unknown]
